FAERS Safety Report 26037759 (Version 1)
Quarter: 2025Q4

REPORT INFORMATION
  Report Type: Spontaneous
  Country: US (occurrence: US)
  Receive Date: 20251112
  Receipt Date: 20251112
  Transmission Date: 20260118
  Serious: No
  Sender: BRACCO
  Company Number: US-BRACCO-2024US07050

PATIENT
  Age: 48 Year
  Sex: Male

DRUGS (3)
  1. LUMASON [Suspect]
     Active Substance: SULFUR HEXAFLUORIDE
     Indication: Echocardiogram
     Dosage: 2 ML (DILUTE  TO 10ML) , SINGLE
     Route: 042
     Dates: start: 20241105, end: 20241105
  2. LUMASON [Suspect]
     Active Substance: SULFUR HEXAFLUORIDE
     Indication: Echocardiogram
     Dosage: 2 ML (DILUTE  TO 10ML) , SINGLE
     Route: 042
     Dates: start: 20241105, end: 20241105
  3. LUMASON [Suspect]
     Active Substance: SULFUR HEXAFLUORIDE
     Indication: Echocardiogram
     Dosage: 2 ML (DILUTE  TO 10ML) , SINGLE
     Route: 042
     Dates: start: 20241105, end: 20241105

REACTIONS (1)
  - Back pain [Recovered/Resolved]

NARRATIVE: CASE EVENT DATE: 20241105
